FAERS Safety Report 8503866-9 (Version None)
Quarter: 2012Q3

REPORT INFORMATION
  Report Type: 
  Country: None (occurrence: None)
  Receive Date: 20120711
  Receipt Date: 20120704
  Transmission Date: 20120928
  Serious: Yes (Hospitalization)
  Sender: FDA-Public Use
  Company Number: JP-SANOFI-AVENTIS-2012SA048400

PATIENT
  Sex: Male

DRUGS (1)
  1. DOCETAXEL [Suspect]
     Route: 042
     Dates: start: 20120601

REACTIONS (1)
  - DERMATOMYOSITIS [None]
